FAERS Safety Report 7470971-8 (Version None)
Quarter: 2011Q2

REPORT INFORMATION
  Report Type: 
  Country: None (occurrence: None)
  Receive Date: 20110506
  Receipt Date: 20110506
  Transmission Date: 20111010
  Serious: Yes (Other)
  Sender: FDA-Public Use
  Company Number: None

PATIENT
  Sex: Male

DRUGS (3)
  1. TIMOLOL MALEATE [Suspect]
     Indication: INTRAOCULAR PRESSURE INCREASED
     Dosage: 1 DROP AT BEDTIME OPHTHALMIC ROUTE
     Route: 047
     Dates: start: 20090101
  2. TIMOLOL MALEATE [Suspect]
     Indication: INTRAOCULAR PRESSURE INCREASED
     Dosage: 1 DROP AT BEDTIME OPHTHALMIC ROUTE
     Route: 047
     Dates: start: 20040101
  3. TIMOLOL MALEATE [Suspect]
     Indication: INTRAOCULAR PRESSURE INCREASED
     Dosage: 1 DROP AT BEDTIME OPHTHALMIC ROUTE
     Route: 047
     Dates: start: 20060101

REACTIONS (4)
  - HYPERSENSITIVITY [None]
  - EYE IRRITATION [None]
  - PRODUCT SUBSTITUTION ISSUE [None]
  - EYE PAIN [None]
